FAERS Safety Report 4719664-8 (Version None)
Quarter: 2005Q3

REPORT INFORMATION
  Report Type: 
  Country: None (occurrence: None)
  Receive Date: 20050721
  Receipt Date: 20040608
  Transmission Date: 20060218
  Serious: No
  Sender: FDA-Public Use
  Company Number: US-GLAXOSMITHKLINE-A0513820A

PATIENT
  Sex: Female

DRUGS (5)
  1. AVANDIA [Suspect]
     Dosage: 8MG ALTERNATE DAYS
     Route: 048
     Dates: start: 20040301, end: 20040401
  2. NORVASC [Concomitant]
  3. BENICAR [Concomitant]
  4. SYNTHROID [Concomitant]
  5. ESTRACE [Concomitant]

REACTIONS (1)
  - FUNGAL INFECTION [None]
